FAERS Safety Report 7967656-8 (Version None)
Quarter: 2011Q4

REPORT INFORMATION
  Report Type: 
  Country: None (occurrence: None)
  Receive Date: 20111207
  Receipt Date: 20111128
  Transmission Date: 20120403
  Serious: Yes (Hospitalization)
  Sender: FDA-Public Use
  Company Number: 2011S1000111

PATIENT
  Age: 39 Year
  Sex: Male

DRUGS (3)
  1. KRYSTEXXA [Suspect]
     Indication: GOUT
     Dosage: 8 MG;X1;IV
     Route: 042
     Dates: start: 20111121, end: 20111121
  2. COLCHICINE [Concomitant]
  3. FEBUXOSTAT [Concomitant]

REACTIONS (4)
  - HAEMODIALYSIS [None]
  - HEPATIC FAILURE [None]
  - RENAL FAILURE ACUTE [None]
  - METHAEMOGLOBINAEMIA [None]
